FAERS Safety Report 13951539 (Version 1)
Quarter: 2017Q3

REPORT INFORMATION
  Report Type: Spontaneous
  Country: US (occurrence: US)
  Receive Date: 20170908
  Receipt Date: 20170908
  Transmission Date: 20171128
  Serious: Yes (Other)
  Sender: FDA-Public Use
  Company Number: US-ROCHE-1195037

PATIENT
  Age: 64 Year
  Sex: Male
  Weight: 99.32 kg

DRUGS (16)
  1. COREG [Concomitant]
     Active Substance: CARVEDILOL
  2. GLYCERYL TRINITRATE [Concomitant]
     Active Substance: NITROGLYCERIN
  3. DITROPAN [Concomitant]
     Active Substance: OXYBUTYNIN CHLORIDE
  4. RITUXAN [Suspect]
     Active Substance: RITUXIMAB
     Indication: B-CELL LYMPHOMA
     Dosage: FREQUENCY CYCLIC, DAY 1,8,15 AND 22
     Route: 042
     Dates: start: 20130102
  5. OMEPRAZOLE. [Concomitant]
     Active Substance: OMEPRAZOLE
  6. VELCADE [Suspect]
     Active Substance: BORTEZOMIB
     Indication: B-CELL LYMPHOMA
     Dosage: FREQUENCY CYCLIC
     Route: 058
     Dates: start: 20130102, end: 20130109
  7. VELCADE [Suspect]
     Active Substance: BORTEZOMIB
     Dosage: FREQUENCY CYCLIC
     Route: 058
     Dates: start: 20130130
  8. VELCADE [Suspect]
     Active Substance: BORTEZOMIB
     Dosage: FREQUENCY CYCLIC
     Route: 058
     Dates: start: 20130206
  9. BENDAMUSTINE [Suspect]
     Active Substance: BENDAMUSTINE
     Indication: B-CELL LYMPHOMA
     Dosage: FREQUENCY CYCLIC, DAY 1 AND 2 OF EACH 35 DAYS
     Route: 042
     Dates: start: 20130102
  10. ACYCLOVIR. [Concomitant]
     Active Substance: ACYCLOVIR
  11. PRASUGREL. [Concomitant]
     Active Substance: PRASUGREL
  12. AMLODIPINE [Concomitant]
     Active Substance: AMLODIPINE BESYLATE
  13. LOVASTATIN. [Concomitant]
     Active Substance: LOVASTATIN
  14. TEMAZEPAM. [Concomitant]
     Active Substance: TEMAZEPAM
  15. SINEMET [Concomitant]
     Active Substance: CARBIDOPA\LEVODOPA
  16. ASPIRIN. [Concomitant]
     Active Substance: ASPIRIN

REACTIONS (5)
  - Injection site pain [Not Recovered/Not Resolved]
  - Pneumonia [Recovered/Resolved]
  - Injection site erythema [Not Recovered/Not Resolved]
  - Injection site pruritus [Not Recovered/Not Resolved]
  - Injection site inflammation [Not Recovered/Not Resolved]

NARRATIVE: CASE EVENT DATE: 20130130
